FAERS Safety Report 17569173 (Version 3)
Quarter: 2020Q2

REPORT INFORMATION
  Report Type: Spontaneous
  Country: US (occurrence: US)
  Receive Date: 20200322
  Receipt Date: 20200616
  Transmission Date: 20200713
  Serious: No
  Sender: FDA-Public Use
  Company Number: NVSC2020US077280

PATIENT
  Sex: Female

DRUGS (2)
  1. NAPHCON A [Suspect]
     Active Substance: NAPHAZOLINE HYDROCHLORIDE\PHENIRAMINE MALEATE
     Indication: VISION BLURRED
     Dosage: UNK
     Route: 065
  2. NAPHCON A [Suspect]
     Active Substance: NAPHAZOLINE HYDROCHLORIDE\PHENIRAMINE MALEATE
     Indication: OCULAR HYPERAEMIA

REACTIONS (4)
  - Vision blurred [Unknown]
  - Off label use [Unknown]
  - Drug ineffective [Unknown]
  - Ocular hyperaemia [Unknown]
